FAERS Safety Report 24527447 (Version 1)
Quarter: 2024Q4

REPORT INFORMATION
  Report Type: Spontaneous
  Country: IT (occurrence: IT)
  Receive Date: 20241021
  Receipt Date: 20241021
  Transmission Date: 20250115
  Serious: Yes (Other)
  Sender: HIKMA
  Company Number: None

PATIENT
  Age: 50 Year
  Sex: Female
  Weight: 64 kg

DRUGS (4)
  1. CARBOPLATIN [Suspect]
     Active Substance: CARBOPLATIN
     Indication: Breast cancer
     Dosage: 716.67 MILLIGRAM, 3W
     Route: 042
     Dates: start: 20231115, end: 20231115
  2. DOCETAXEL [Suspect]
     Active Substance: DOCETAXEL
     Indication: Breast cancer
     Dosage: 121.5 MILLIGRAM, 3W
     Route: 042
     Dates: start: 20231115, end: 20231115
  3. TRAZIMERA [Suspect]
     Active Substance: TRASTUZUMAB-QYYP
     Indication: Breast cancer
     Dosage: 512 MILLIGRAM, 3W
     Route: 042
     Dates: start: 20231115, end: 20231115
  4. TICHE [Concomitant]
     Indication: Product used for unknown indication
     Dosage: 125 MICROGRAM, QD
     Route: 065

REACTIONS (3)
  - Alopecia [Recovering/Resolving]
  - Thrombocytopenia [Recovered/Resolved]
  - Dysgeusia [Recovered/Resolved]

NARRATIVE: CASE EVENT DATE: 20231116
